FAERS Safety Report 5048425-8 (Version None)
Quarter: 2006Q3

REPORT INFORMATION
  Report Type: 
  Country: None (occurrence: None)
  Receive Date: 20060705
  Receipt Date: 20060621
  Transmission Date: 20061208
  Serious: Yes (Hospitalization, Other)
  Sender: FDA-Public Use
  Company Number: 2006AL001623

PATIENT
  Sex: Female

DRUGS (3)
  1. METOCLOPRAMIDE [Suspect]
     Indication: ABDOMINAL PAIN
     Dosage: 10 MG; PO
     Route: 048
     Dates: start: 20040411, end: 20040611
  2. XANAX [Concomitant]
  3. PROZAC [Concomitant]

REACTIONS (16)
  - AKATHISIA [None]
  - ANXIETY [None]
  - ASTHENIA [None]
  - BRAIN DAMAGE [None]
  - DEPRESSION [None]
  - DYSKINESIA [None]
  - EMOTIONAL DISORDER [None]
  - INJURY [None]
  - INTERNAL INJURY [None]
  - MOVEMENT DISORDER [None]
  - MUSCLE DISORDER [None]
  - MUSCULOSKELETAL STIFFNESS [None]
  - NEUROLOGICAL SYMPTOM [None]
  - PAIN [None]
  - TARDIVE DYSKINESIA [None]
  - TREMOR [None]
